FAERS Safety Report 15310788 (Version 1)
Quarter: 2018Q3

REPORT INFORMATION
  Report Type: Spontaneous
  Country: TW (occurrence: TW)
  Receive Date: 20180823
  Receipt Date: 20180823
  Transmission Date: 20181010
  Serious: Yes (Hospitalization)
  Sender: FDA-Public Use
  Company Number: TW-MYLANLABS-2018M1062358

PATIENT
  Age: 36 Year
  Sex: Male

DRUGS (1)
  1. KETAMINE [Suspect]
     Active Substance: KETAMINE
     Indication: PRODUCT USED FOR UNKNOWN INDICATION
     Dosage: 2?3 TIMES PER WEEK; FOR 6?7 YEARS; DISCONTINUED FROM PAST 4 YEARS
     Route: 045

REACTIONS (2)
  - Cystitis erosive [Recovered/Resolved]
  - Drug abuse [Recovered/Resolved]
